FAERS Safety Report 6062995-2 (Version None)
Quarter: 2009Q1

REPORT INFORMATION
  Report Type: 
  Country: None (occurrence: None)
  Receive Date: 20090203
  Receipt Date: 20090130
  Transmission Date: 20090719
  Serious: Yes (Other)
  Sender: FDA-Public Use
  Company Number: B0556715A

PATIENT
  Sex: Male

DRUGS (1)
  1. RELENZA [Suspect]
     Route: 055

REACTIONS (3)
  - FACIAL PAIN [None]
  - FACIAL PALSY [None]
  - HYPOAESTHESIA FACIAL [None]
